FAERS Safety Report 9024484 (Version 2)
Quarter: 2013Q1

REPORT INFORMATION
  Report Type: Spontaneous
  Country: AR (occurrence: None)
  Receive Date: 20130104
  Receipt Date: 20130122
  Transmission Date: 20140127
  Serious: Yes (Life-Threatening, Other)
  Sender: FDA-Public Use
  Company Number: 2012P1068312

PATIENT
  Age: 10 Year
  Sex: Female

DRUGS (3)
  1. RIFAMPIN [Suspect]
     Indication: TUBERCULOSIS
  2. ISONIAZID [Suspect]
     Indication: TUBERCULOSIS
  3. PYRAZINAMIDE [Suspect]
     Indication: TUBERCULOSIS

REACTIONS (11)
  - Acute hepatic failure [None]
  - Hepatotoxicity [None]
  - Liver transplant [None]
  - Grand mal convulsion [None]
  - Coagulopathy [None]
  - Encephalopathy [None]
  - Neurotoxicity [None]
  - Status epilepticus [None]
  - Renal cyst [None]
  - Hepatic necrosis [None]
  - Liver injury [None]
